FAERS Safety Report 5825063-8 (Version None)
Quarter: 2008Q3

REPORT INFORMATION
  Report Type: 
  Country: None (occurrence: None)
  Receive Date: 20080729
  Receipt Date: 20080728
  Transmission Date: 20090109
  Serious: Yes (Death, Hospitalization)
  Sender: FDA-Public Use
  Company Number: FR-BRISTOL-MYERS SQUIBB COMPANY-14278808

PATIENT
  Age: 88 Year
  Sex: Female

DRUGS (7)
  1. ECAZIDE [Suspect]
  2. AMIODARONE [Suspect]
     Dates: start: 20050801, end: 20080613
  3. PREVISCAN [Suspect]
     Dates: end: 20080616
  4. LEVOTHYROX [Suspect]
  5. IMOVANE [Suspect]
  6. XALATAN [Suspect]
  7. HYPERIUM [Suspect]

REACTIONS (2)
  - INTERSTITIAL LUNG DISEASE [None]
  - RESPIRATORY FAILURE [None]
